FAERS Safety Report 8605483-9 (Version None)
Quarter: 2012Q3

REPORT INFORMATION
  Report Type: 
  Country: None (occurrence: None)
  Receive Date: 20120820
  Receipt Date: 20120810
  Transmission Date: 20120928
  Serious: Yes (Other)
  Sender: FDA-Public Use
  Company Number: US-ASTRAZENECA-2012SE57010

PATIENT
  Age: 693 Month
  Sex: Male
  Weight: 79.4 kg

DRUGS (6)
  1. NEBIVOLOL HCL [Concomitant]
     Indication: HYPERTENSION
     Route: 048
     Dates: start: 20120201
  2. NEXIUM [Suspect]
     Route: 048
     Dates: start: 20120201
  3. AMBIEN CR [Concomitant]
     Indication: SLEEP DISORDER
     Route: 048
  4. NEXIUM [Suspect]
     Indication: GASTRITIS
     Route: 048
     Dates: end: 20120201
  5. RAPAFLO [Concomitant]
     Indication: PROSTATOMEGALY
     Route: 048
     Dates: start: 20120701
  6. AMLODIPINE BESYLATE [Concomitant]
     Indication: HYPERTENSION
     Route: 048
     Dates: start: 20120201

REACTIONS (9)
  - IMPAIRED HEALING [None]
  - COELIAC DISEASE [None]
  - MUSCLE SPASMS [None]
  - OFF LABEL USE [None]
  - NON-CARDIAC CHEST PAIN [None]
  - WRIST FRACTURE [None]
  - ABDOMINAL PAIN [None]
  - PELVIC PAIN [None]
  - HYPERTENSION [None]
